FAERS Safety Report 5344961-5 (Version None)
Quarter: 2007Q2

REPORT INFORMATION
  Report Type: 
  Country: None (occurrence: None)
  Receive Date: 20070416
  Receipt Date: 20061217
  Transmission Date: 20071010
  Serious: No
  Sender: FDA-Public Use
  Company Number: 2006SP004427

PATIENT
  Age: 46 Year
  Sex: Female
  Weight: 80.7403 kg

DRUGS (2)
  1. LUNESTA [Suspect]
     Indication: INSOMNIA
     Dosage: SEE IMAGE
     Route: 048
     Dates: start: 20060501, end: 20060501
  2. LUNESTA [Suspect]
     Indication: INSOMNIA
     Dosage: SEE IMAGE
     Route: 048
     Dates: start: 20061215, end: 20061215

REACTIONS (3)
  - DYSGEUSIA [None]
  - THROAT IRRITATION [None]
  - TONGUE COATED [None]
